FAERS Safety Report 5799430-5 (Version None)
Quarter: 2008Q3

REPORT INFORMATION
  Report Type: 
  Country: None (occurrence: None)
  Receive Date: 20080702
  Receipt Date: 20080702
  Transmission Date: 20090109
  Serious: No
  Sender: FDA-Public Use
  Company Number: None

PATIENT
  Age: 56 Year
  Sex: Male

DRUGS (1)
  1. VARENICLINE (STARTER PACK) [Suspect]
     Dosage: 0.5 MG DAILY PO
     Route: 048
     Dates: start: 20080613, end: 20080627

REACTIONS (1)
  - ABDOMINAL PAIN [None]
